FAERS Safety Report 4339874-1 (Version None)
Quarter: 2004Q2

REPORT INFORMATION
  Report Type: 
  Country: None (occurrence: None)
  Receive Date: 20040416
  Receipt Date: 20021211
  Transmission Date: 20050107
  Serious: Yes (Other)
  Sender: FDA-Public Use
  Company Number: 200214961FR

PATIENT
  Age: 54 Year
  Sex: Female
  Weight: 53 kg

DRUGS (7)
  1. KETEK [Suspect]
     Indication: PHARYNGITIS
     Route: 048
     Dates: start: 20021126, end: 20021130
  2. KETEK [Suspect]
     Indication: RHINITIS
     Route: 048
     Dates: start: 20021126, end: 20021130
  3. PROVAMES [Concomitant]
  4. COLPRONE TAB [Concomitant]
  5. ISKEDYL [Concomitant]
  6. TRIMETAZIDINE [Concomitant]
  7. MUCOMYST [Concomitant]
     Dates: start: 20021126

REACTIONS (4)
  - ARTHROPATHY [None]
  - PAIN [None]
  - TENDON DISORDER [None]
  - TENDONITIS [None]
